FAERS Safety Report 24068840 (Version 3)
Quarter: 2024Q3

REPORT INFORMATION
  Report Type: Spontaneous
  Country: US (occurrence: US)
  Receive Date: 20240710
  Receipt Date: 20240822
  Transmission Date: 20241017
  Serious: No
  Sender: ROCHE
  Company Number: US-ROCHE-3556430

PATIENT
  Age: 73 Year
  Sex: Male
  Weight: 82.9 kg

DRUGS (2)
  1. VABYSMO [Suspect]
     Active Substance: FARICIMAB\FARICIMAB-SVOA
     Indication: Pathologic myopia
     Route: 050
     Dates: start: 202307
  2. BETADINE [Concomitant]
     Active Substance: POVIDONE-IODINE

REACTIONS (6)
  - Off label use [Unknown]
  - Ocular discomfort [Unknown]
  - Eye pain [Unknown]
  - Eye irritation [Unknown]
  - Hypoaesthesia eye [Unknown]
  - Lacrimation increased [Unknown]

NARRATIVE: CASE EVENT DATE: 20230701
